FAERS Safety Report 22397710 (Version 1)
Quarter: 2023Q2

REPORT INFORMATION
  Report Type: Spontaneous
  Country: US (occurrence: US)
  Receive Date: 20230602
  Receipt Date: 20230602
  Transmission Date: 20230721
  Serious: No
  Sender: FDA-Public Use
  Company Number: US-SA-SAC20230601000854

PATIENT
  Age: 57 Year
  Sex: Male

DRUGS (8)
  1. DUPIXENT [Suspect]
     Active Substance: DUPILUMAB
     Indication: Asthma
     Dosage: 300 MG, QOW
     Route: 058
     Dates: start: 20210128
  2. SPIRIVA [Concomitant]
     Active Substance: TIOTROPIUM BROMIDE MONOHYDRATE
  3. FISH OIL [Concomitant]
     Active Substance: FISH OIL
  4. SINGULAIR [Concomitant]
     Active Substance: MONTELUKAST SODIUM
  5. OMEPRAZOLE [Concomitant]
     Active Substance: OMEPRAZOLE
  6. PREDNISONE [Concomitant]
     Active Substance: PREDNISONE
  7. LOSARTAN [Concomitant]
     Active Substance: LOSARTAN
  8. FLAXSEED [Concomitant]
     Active Substance: FLAX SEED

REACTIONS (2)
  - Eczema [Recovering/Resolving]
  - Product dose omission in error [Recovering/Resolving]
